FAERS Safety Report 26073044 (Version 1)
Quarter: 2025Q4

REPORT INFORMATION
  Report Type: 
  Country: CN (occurrence: CN)
  Receive Date: 20251121
  Receipt Date: 20251121
  Transmission Date: 20260118
  Serious: Yes (Other)
  Sender: AKESO BIOPHARMA CO., LTD.
  Company Number: CN-Akeso Biopharma Co., Ltd.-2189040

PATIENT
  Age: 84 Year
  Sex: Male
  Weight: 58.5 kg

DRUGS (2)
  1. PENPULIMAB-KCQX [Suspect]
     Active Substance: PENPULIMAB-KCQX
     Indication: Nasal sinus cancer
     Dates: start: 20251024, end: 20251024
  2. SODIUM CHLORIDE [Concomitant]
     Active Substance: SODIUM CHLORIDE
     Dates: start: 20251024, end: 20251024

REACTIONS (3)
  - Abdominal pain [Recovering/Resolving]
  - Feeling hot [Recovering/Resolving]
  - Pruritus [Recovering/Resolving]

NARRATIVE: CASE EVENT DATE: 20251024
